FAERS Safety Report 11740704 (Version 2)
Quarter: 2015Q4

REPORT INFORMATION
  Report Type: Spontaneous
  Country: US (occurrence: US)
  Receive Date: 20151110
  Receipt Date: 20151120
  Transmission Date: 20160304
  Serious: No
  Sender: FDA-Public Use
  Company Number: US-ELI_LILLY_AND_COMPANY-US201207008776

PATIENT
  Age: 72 Year
  Sex: Female
  Weight: 54.88 kg

DRUGS (2)
  1. FORTEO [Suspect]
     Active Substance: TERIPARATIDE
     Indication: OSTEOPOROSIS
     Dosage: 20 UG, QD
     Route: 058
     Dates: start: 20120417, end: 20120419
  2. CELEBREX [Concomitant]
     Active Substance: CELECOXIB
     Indication: GASTRIC DISORDER

REACTIONS (5)
  - Tachycardia [Recovered/Resolved]
  - Fear [Unknown]
  - Back pain [Unknown]
  - Pain [Unknown]
  - Arthralgia [Unknown]

NARRATIVE: CASE EVENT DATE: 20120417
